FAERS Safety Report 5627219-6 (Version None)
Quarter: 2008Q1

REPORT INFORMATION
  Report Type: 
  Country: None (occurrence: None)
  Receive Date: 20080215
  Receipt Date: 20080213
  Transmission Date: 20080703
  Serious: Yes (Disabling, Other)
  Sender: FDA-Public Use
  Company Number: US-BRISTOL-MYERS SQUIBB COMPANY-14002026

PATIENT
  Age: 55 Year
  Sex: Female

DRUGS (3)
  1. ARIPIPRAZOLE [Suspect]
     Indication: PSYCHOTIC DISORDER
     Dosage: INITIAL DOSE WAS 22.5 MG, TAPERED TO 5MG AND FINALLY DISCONTINUED.
     Route: 048
     Dates: start: 20030901, end: 20061001
  2. GABAPENTIN [Concomitant]
     Indication: ANXIETY
  3. DIAZEPAM [Concomitant]
     Indication: ANXIETY

REACTIONS (4)
  - DRY MOUTH [None]
  - GINGIVITIS ULCERATIVE [None]
  - MOUTH ULCERATION [None]
  - TARDIVE DYSKINESIA [None]
